FAERS Safety Report 11938661 (Version 1)
Quarter: 2016Q1

REPORT INFORMATION
  Report Type: Spontaneous
  Country: FR (occurrence: FR)
  Receive Date: 20160122
  Receipt Date: 20160122
  Transmission Date: 20160526
  Serious: Yes (Other)
  Sender: FDA-Public Use
  Company Number: FR-ASTRAZENECA-2016SE05659

PATIENT
  Age: 15742 Day
  Sex: Male

DRUGS (5)
  1. XEROQUEL [Suspect]
     Active Substance: QUETIAPINE FUMARATE
     Route: 048
  2. TERCIAN [Suspect]
     Active Substance: CYAMEMAZINE
  3. TERALITHE [Suspect]
     Active Substance: LITHIUM CARBONATE
  4. THERALENE [Suspect]
     Active Substance: TRIMEPRAZINE
  5. NOCTAMIDE [Suspect]
     Active Substance: LORMETAZEPAM

REACTIONS (2)
  - Pulmonary embolism [Recovered/Resolved]
  - Deep vein thrombosis [Recovered/Resolved]

NARRATIVE: CASE EVENT DATE: 20150326
